FAERS Safety Report 21123791 (Version 5)
Quarter: 2023Q1

REPORT INFORMATION
  Report Type: Spontaneous
  Country: PE (occurrence: PE)
  Receive Date: 20220725
  Receipt Date: 20230324
  Transmission Date: 20230418
  Serious: Yes (Other)
  Sender: FDA-Public Use
  Company Number: PE-PFIZER INC-PV202200025981

PATIENT
  Age: 70 Year
  Sex: Female

DRUGS (1)
  1. ENBREL [Suspect]
     Active Substance: ETANERCEPT
     Indication: Product used for unknown indication
     Dosage: UNK
     Route: 065

REACTIONS (6)
  - Hyperthyroidism [Recovering/Resolving]
  - Weight decreased [Unknown]
  - Discomfort [Unknown]
  - Discomfort [Unknown]
  - Somnolence [Unknown]
  - Erythema [Unknown]

NARRATIVE: CASE EVENT DATE: 20220601
